FAERS Safety Report 4831421-0 (Version None)
Quarter: 2005Q4

REPORT INFORMATION
  Report Type: 
  Country: None (occurrence: None)
  Receive Date: 20051116
  Receipt Date: 20051107
  Transmission Date: 20060501
  Serious: Yes (Hospitalization)
  Sender: FDA-Public Use
  Company Number: GXKR2005US01921

PATIENT
  Age: 28 Year
  Sex: Male

DRUGS (2)
  1. RIFAMPIN [Suspect]
     Indication: OSTEOMYELITIS
     Dosage: 300 MG, Q12H, ORAL; SEE IMAGE
     Route: 048
  2. VANCOMYCIN [Suspect]
     Dosage: 1000 MG, Q12H, INTRAVENOUS; SEE IMAGE
     Route: 042

REACTIONS (12)
  - ACTIVATED PARTIAL THROMBOPLASTIN TIME PROLONGED [None]
  - BLOOD FIBRINOGEN INCREASED [None]
  - BLOOD LACTATE DEHYDROGENASE INCREASED [None]
  - FIBRIN D DIMER INCREASED [None]
  - MICROANGIOPATHIC HAEMOLYTIC ANAEMIA [None]
  - OSTEOMYELITIS [None]
  - PETECHIAE [None]
  - PROTHROMBIN TIME PROLONGED [None]
  - PYREXIA [None]
  - RENAL FAILURE ACUTE [None]
  - THROMBOTIC THROMBOCYTOPENIC PURPURA [None]
  - VON WILLEBRAND'S DISEASE [None]
